FAERS Safety Report 4598749-3 (Version None)
Quarter: 2005Q1

REPORT INFORMATION
  Report Type: 
  Country: None (occurrence: None)
  Receive Date: 20050304
  Receipt Date: 20050228
  Transmission Date: 20050727
  Serious: Yes (Hospitalization)
  Sender: FDA-Public Use
  Company Number: AU-GLAXOSMITHKLINE-B0373608A

PATIENT
  Age: 50 Year
  Sex: Female

DRUGS (8)
  1. ZYBAN [Suspect]
     Indication: ILL-DEFINED DISORDER
     Route: 065
     Dates: start: 20050216
  2. NITROFURANTOIN [Concomitant]
     Route: 065
  3. RABEPRAZOLE SODIUM [Concomitant]
     Route: 065
  4. OESTRADIOL [Concomitant]
     Route: 065
  5. DOXYCYCLINE [Concomitant]
     Route: 065
  6. PREDNISOLONE [Concomitant]
     Route: 065
  7. IPATROPIUM BROMIDE [Concomitant]
     Route: 065
  8. SALBUTAMOL SULPHATE [Concomitant]
     Route: 065

REACTIONS (2)
  - DYSPNOEA [None]
  - RESPIRATORY DISORDER [None]
